FAERS Safety Report 17169363 (Version 1)
Quarter: 2019Q4

REPORT INFORMATION
  Report Type: Spontaneous
  Country: US (occurrence: US)
  Receive Date: 20191125
  Receipt Date: 20191125
  Transmission Date: 20200122
  Serious: Yes (Hospitalization, Other)
  Sender: FDA-Public Use
  Company Number: None

PATIENT
  Age: 57 Year
  Sex: Male
  Weight: 74.84 kg

DRUGS (2)
  1. CLOZAPINE. [Suspect]
     Active Substance: CLOZAPINE
     Indication: SCHIZOPHRENIA
     Route: 048
     Dates: start: 2002
  2. LITHIUM. [Suspect]
     Active Substance: LITHIUM

REACTIONS (3)
  - Obstruction [None]
  - Constipation [None]
  - Electrolyte imbalance [None]

NARRATIVE: CASE EVENT DATE: 20190928
